FAERS Safety Report 10073050 (Version 2)
Quarter: 2014Q2

REPORT INFORMATION
  Report Type: Spontaneous
  Country: US (occurrence: US)
  Receive Date: 20140411
  Receipt Date: 20140606
  Transmission Date: 20141212
  Serious: Yes (Death, Hospitalization, Other)
  Sender: FDA-Public Use
  Company Number: US-BAYER-2014-053432

PATIENT
  Age: 86 Year
  Sex: Male

DRUGS (2)
  1. XOFIGO [Suspect]
     Indication: PROSTATE CANCER STAGE IV
     Dosage: UNK
     Route: 042
     Dates: start: 20131018, end: 20140314
  2. XOFIGO [Suspect]
     Indication: METASTASES TO BONE

REACTIONS (7)
  - Pneumonia [None]
  - Pulmonary embolism [None]
  - Acute respiratory failure [None]
  - Death [Fatal]
  - Haemoglobin decreased [None]
  - Haemoglobin decreased [None]
  - Haemoglobin decreased [None]
